FAERS Safety Report 7085210-X (Version None)
Quarter: 2010Q4

REPORT INFORMATION
  Report Type: 
  Country: None (occurrence: None)
  Receive Date: 20101105
  Receipt Date: 20101029
  Transmission Date: 20110411
  Serious: Yes (Death, Other)
  Sender: FDA-Public Use
  Company Number: PHHY2010US42792

PATIENT
  Sex: Female
  Weight: 81.82 kg

DRUGS (2)
  1. AFINITOR [Suspect]
     Indication: RENAL CANCER
     Dosage: 10 MG DAILY
     Route: 048
     Dates: start: 20100524, end: 20100628
  2. AFINITOR [Suspect]
     Indication: METASTATIC RENAL CELL CARCINOMA
     Dosage: 5 MG DAILY
     Route: 048
     Dates: start: 20100617, end: 20100923

REACTIONS (7)
  - DYSPNOEA [None]
  - FATIGUE [None]
  - LUNG DISORDER [None]
  - MALIGNANT NEOPLASM PROGRESSION [None]
  - PLEURAL EFFUSION [None]
  - PNEUMONIA [None]
  - WEIGHT INCREASED [None]
